FAERS Safety Report 16268817 (Version 1)
Quarter: 2019Q2

REPORT INFORMATION
  Report Type: Spontaneous
  Country: US (occurrence: US)
  Receive Date: 20190503
  Receipt Date: 20190503
  Transmission Date: 20190711
  Serious: No
  Sender: FDA-Public Use
  Company Number: US-GLENMARK PHARMACEUTICALS-2019GMK040064

PATIENT

DRUGS (1)
  1. TACROLIMUS. [Suspect]
     Active Substance: TACROLIMUS
     Indication: ORAL LICHEN PLANUS
     Dosage: UNK, BID; ROUTE: GUM AREA
     Route: 050

REACTIONS (4)
  - Product use in unapproved indication [Unknown]
  - Product prescribing error [Unknown]
  - Intercepted product prescribing error [Unknown]
  - Intercepted medication error [Unknown]
